FAERS Safety Report 16194463 (Version 1)
Quarter: 2019Q2

REPORT INFORMATION
  Report Type: Spontaneous
  Country: US (occurrence: US)
  Receive Date: 20190414
  Receipt Date: 20190414
  Transmission Date: 20190711
  Serious: No
  Sender: FDA-Public Use
  Company Number: US-JNJFOC-20190312803

PATIENT
  Sex: Female
  Weight: 50.8 kg

DRUGS (3)
  1. TOPAMAX [Concomitant]
     Active Substance: TOPIRAMATE
     Indication: MIGRAINE
     Dosage: DAILY
     Route: 065
  2. MENS ROGAINE EXTRA STRENGTH [Suspect]
     Active Substance: MINOXIDIL
     Indication: ALOPECIA
     Dosage: LESS THAN 1ML, ONCE DAILY
     Route: 061
  3. MENS ROGAINE EXTRA STRENGTH [Suspect]
     Active Substance: MINOXIDIL
     Indication: ALOPECIA
     Dosage: LESS THAN 1ML TWICE DAILY
     Route: 061

REACTIONS (4)
  - Hair growth abnormal [Not Recovered/Not Resolved]
  - Dry skin [Recovered/Resolved]
  - Intentional product misuse [Unknown]
  - Product use issue [Unknown]
